FAERS Safety Report 5305377-0 (Version None)
Quarter: 2007Q2

REPORT INFORMATION
  Report Type: 
  Country: None (occurrence: None)
  Receive Date: 20070424
  Receipt Date: 20070417
  Transmission Date: 20071010
  Serious: Yes (Hospitalization)
  Sender: FDA-Public Use
  Company Number: FR-AVENTIS-200711363FR

PATIENT
  Age: 83 Year
  Sex: Male

DRUGS (4)
  1. ANANDRON [Suspect]
     Indication: PROSTATE CANCER
     Route: 048
  2. XATRAL                             /00975301/ [Suspect]
     Indication: DRUG USE FOR UNKNOWN INDICATION
     Route: 048
  3. NOVONORM [Suspect]
     Indication: DIABETES MELLITUS
     Route: 048
  4. PRITOR                             /01421801/ [Suspect]
     Route: 048

REACTIONS (3)
  - NAUSEA [None]
  - VERTIGO [None]
  - VOMITING [None]
